FAERS Safety Report 8288994-8 (Version None)
Quarter: 2012Q2

REPORT INFORMATION
  Report Type: 
  Country: None (occurrence: None)
  Receive Date: 20120412
  Receipt Date: 20120327
  Transmission Date: 20120825
  Serious: Yes (Hospitalization)
  Sender: FDA-Public Use
  Company Number: FK201200997

PATIENT
  Age: 78 Year
  Sex: Female
  Weight: 65 kg

DRUGS (10)
  1. PREDNISONE TAB [Concomitant]
  2. LISINOPRIL [Concomitant]
  3. SIMVASTATIN [Concomitant]
  4. AZTREONAM [Concomitant]
  5. FIGRASTIM [Concomitant]
  6. AMIKACIN [Concomitant]
  7. VANCOMYCIN [Suspect]
     Indication: ABSCESS
     Dosage: 750 MG, Q 12 HOURS
  8. GLIPIZIDE [Concomitant]
  9. ASPIRIN [Concomitant]
  10. EPOGEN [Concomitant]

REACTIONS (7)
  - THROMBOPHLEBITIS SEPTIC [None]
  - BONE MARROW FAILURE [None]
  - HYPOTENSION [None]
  - SPLENOMEGALY [None]
  - STAPHYLOCOCCAL INFECTION [None]
  - ABDOMINAL PAIN [None]
  - DEEP VEIN THROMBOSIS [None]
